FAERS Safety Report 9324848 (Version 1)
Quarter: 2013Q2

REPORT INFORMATION
  Report Type: Report from Study
  Country: CA (occurrence: CA)
  Receive Date: 20130603
  Receipt Date: 20130603
  Transmission Date: 20140414
  Serious: Yes (Life-Threatening, Hospitalization)
  Sender: FDA-Public Use
  Company Number: PHHY2013CA055075

PATIENT
  Sex: Male

DRUGS (2)
  1. SANDOSTATIN LAR [Suspect]
     Indication: GALLBLADDER NEOPLASM
     Dosage: 20 MG, ONCE A MONTH
     Route: 030
     Dates: start: 20130508
  2. SANDOSTATIN LAR [Suspect]
     Indication: DUODENAL OBSTRUCTION

REACTIONS (1)
  - Terminal state [Unknown]
